FAERS Safety Report 4861040-1 (Version None)
Quarter: 2005Q4

REPORT INFORMATION
  Report Type: 
  Country: None (occurrence: None)
  Receive Date: 20051216
  Receipt Date: 20051209
  Transmission Date: 20060501
  Serious: Yes (Hospitalization, Other)
  Sender: FDA-Public Use
  Company Number: KII-2005-0020194

PATIENT
  Age: 45 Year
  Sex: Female

DRUGS (8)
  1. OXYCONTIN [Suspect]
     Dosage: UNK, ORAL
     Route: 048
  2. CARISOPRODOL [Suspect]
     Dosage: UNK, ORAL
     Route: 048
  3. ANTIEPILEPTICS () [Suspect]
     Dosage: UNK, ORAL
     Route: 048
  4. NSAID'S () [Suspect]
     Dosage: UNK, ORAL
     Route: 048
  5. BENZODIAZEPINE DERIVATIVES () [Suspect]
     Dosage: UNK
     Route: 065
  6. TETRAHYDROCANNABINOL (TETRAHYDROCANNABINOL) [Suspect]
     Dosage: UNK
     Route: 065
  7. ACETAMINOPHEN [Suspect]
     Dosage: UNK
     Route: 065
  8. ASPIRIN [Suspect]
     Dosage: UNK
     Route: 065

REACTIONS (5)
  - ATRIOVENTRICULAR BLOCK FIRST DEGREE [None]
  - DRUG ABUSER [None]
  - DRUG SCREEN POSITIVE [None]
  - LETHARGY [None]
  - OXYGEN SATURATION DECREASED [None]
